FAERS Safety Report 23404399 (Version 1)
Quarter: 2024Q1

REPORT INFORMATION
  Report Type: Spontaneous
  Country: SE (occurrence: SE)
  Receive Date: 20240116
  Receipt Date: 20240116
  Transmission Date: 20240410
  Serious: Yes (Other)
  Sender: FDA-Public Use
  Company Number: None

PATIENT
  Age: 73 Year
  Sex: Female
  Weight: 121 kg

DRUGS (12)
  1. AMLODIPINE [Suspect]
     Active Substance: AMLODIPINE BESYLATE
     Indication: Hypertension
     Dosage: 1 TABLET 1 TIME/DAY
     Dates: start: 20231025, end: 20231128
  2. METHOTREXATE [Concomitant]
     Active Substance: METHOTREXATE
     Dosage: 8TABL. 1 GGR/V.
     Dates: start: 20211217
  3. ACETAMINOPHEN [Concomitant]
     Active Substance: ACETAMINOPHEN
     Dosage: 2 X3
     Dates: start: 20181129
  4. METFORMIN [Concomitant]
     Active Substance: METFORMIN HYDROCHLORIDE
     Dosage: 1X1
     Dates: start: 20210705
  5. ANASTROZOLE [Concomitant]
     Active Substance: ANASTROZOLE
     Dosage: 1 X1
     Dates: start: 20210512
  6. CANDESARTAN CILEXETIL AND HYDROCHLOROTHIAZIDE [Concomitant]
     Active Substance: CANDESARTAN CILEXETIL\HYDROCHLOROTHIAZIDE
     Dosage: 1X1
     Dates: start: 20200109
  7. PREDNISOLONE [Concomitant]
     Active Substance: PREDNISOLONE
     Dosage: 1,5 TABL X1
     Dates: start: 20201123
  8. SECUKINUMAB [Concomitant]
     Active Substance: SECUKINUMAB
     Dosage: SOLUTION FOR INJECTION IN PRE-FILLED PEN
     Dates: start: 20230220
  9. ATORVASTATIN [Concomitant]
     Active Substance: ATORVASTATIN
     Dosage: 1 X1
     Dates: start: 20221017
  10. BETOLVEX [Concomitant]
     Dosage: 1X1
     Dates: start: 20210705
  11. GABAPENTIN [Concomitant]
     Active Substance: GABAPENTIN
     Dosage: 1 + 1 + 2 /DAY
     Dates: start: 20221017
  12. OMEPRAZOLE [Concomitant]
     Active Substance: OMEPRAZOLE
     Dosage: 1X2
     Dates: start: 20190204

REACTIONS (1)
  - Confusional state [Recovered/Resolved]

NARRATIVE: CASE EVENT DATE: 20231026
